FAERS Safety Report 15312819 (Version 1)
Quarter: 2018Q3

REPORT INFORMATION
  Report Type: Spontaneous
  Country: DE (occurrence: DE)
  Receive Date: 20180823
  Receipt Date: 20180823
  Transmission Date: 20181010
  Serious: No
  Sender: FDA-Public Use
  Company Number: DE-BIOVERATIV-2018BV000587

PATIENT
  Age: 1 Year

DRUGS (1)
  1. ELOCTA [Suspect]
     Active Substance: EFMOROCTOCOG ALFA
     Indication: IMMUNE TOLERANCE INDUCTION
     Dosage: TWO DOSES PER DAY
     Route: 065

REACTIONS (1)
  - Off label use [Unknown]
